FAERS Safety Report 6635265-9 (Version None)
Quarter: 2010Q1

REPORT INFORMATION
  Report Type: 
  Country: None (occurrence: None)
  Receive Date: 20100315
  Receipt Date: 20100310
  Transmission Date: 20100710
  Serious: Yes (Hospitalization)
  Sender: FDA-Public Use
  Company Number: FR-WYE-G05720210

PATIENT
  Sex: Male

DRUGS (3)
  1. TAZOCILLINE [Suspect]
     Dosage: UNKNOWN
     Route: 042
     Dates: start: 20091028, end: 20091104
  2. TARGOCID [Suspect]
     Dosage: UNKNOWN
     Route: 042
     Dates: start: 20091028, end: 20091104
  3. OFLOCET [Suspect]
     Dosage: UNKNOWN
     Route: 042
     Dates: start: 20091028, end: 20091104

REACTIONS (4)
  - ALVEOLITIS ALLERGIC [None]
  - DERMATITIS EXFOLIATIVE [None]
  - DRUG INEFFECTIVE [None]
  - EOSINOPHILIA [None]
